FAERS Safety Report 14016996 (Version 2)
Quarter: 2017Q4

REPORT INFORMATION
  Report Type: Spontaneous
  Country: ES (occurrence: ES)
  Receive Date: 20170927
  Receipt Date: 20171213
  Transmission Date: 20180321
  Serious: Yes (Hospitalization, Other)
  Sender: FDA-Public Use
  Company Number: ES-ELI_LILLY_AND_COMPANY-ES201709008624

PATIENT
  Age: 56 Year
  Sex: Male
  Weight: 120 kg

DRUGS (1)
  1. IXEKIZUMAB [Suspect]
     Active Substance: IXEKIZUMAB
     Indication: PSORIASIS
     Dosage: UNK, UNKNOWN
     Route: 065
     Dates: start: 201703, end: 201708

REACTIONS (8)
  - Lipids increased [Unknown]
  - Cardiac failure [Recovering/Resolving]
  - Congestive cardiomyopathy [Recovering/Resolving]
  - Pulmonary oedema [Recovering/Resolving]
  - Phlebitis [Recovering/Resolving]
  - Injection site pain [Unknown]
  - Cardiac valve disease [Recovering/Resolving]
  - Blood culture positive [Recovering/Resolving]

NARRATIVE: CASE EVENT DATE: 201708
